FAERS Safety Report 7642726-2 (Version None)
Quarter: 2011Q3

REPORT INFORMATION
  Report Type: 
  Country: None (occurrence: None)
  Receive Date: 20110728
  Receipt Date: 20110726
  Transmission Date: 20111222
  Serious: No
  Sender: FDA-Public Use
  Company Number: US-PFIZER INC-2011170503

PATIENT
  Sex: Female
  Weight: 53.061 kg

DRUGS (3)
  1. ADVIL LIQUI-GELS [Suspect]
     Indication: SPONDYLITIS
     Dosage: UNK
     Dates: start: 20110701
  2. IBUPROFEN [Suspect]
     Indication: SPONDYLITIS
     Dosage: 800 MG DAILY
     Dates: start: 20101201
  3. IBUPROFEN [Suspect]
     Indication: SPONDYLITIS
     Dosage: 800 MG, DAILY
     Dates: start: 20110701

REACTIONS (4)
  - OEDEMA [None]
  - RENAL PAIN [None]
  - FLUID RETENTION [None]
  - DYSPEPSIA [None]
